FAERS Safety Report 5677800-3 (Version None)
Quarter: 2008Q1

REPORT INFORMATION
  Report Type: 
  Country: None (occurrence: None)
  Receive Date: 20080318
  Receipt Date: 20080307
  Transmission Date: 20080703
  Serious: Yes (Life-Threatening)
  Sender: FDA-Public Use
  Company Number: STI-2008-00991

PATIENT
  Age: 61 Year
  Sex: Male

DRUGS (16)
  1. CLINDAMYCIN HCL [Suspect]
     Indication: PNEUMONIA STAPHYLOCOCCAL
     Dosage: 2400 MG (600 MG, 4 IN 1 DAYS)
     Dates: start: 20080218, end: 20080223
  2. AMOXICILLIN SODIUM (AMOXICILLIN SODIUM) [Concomitant]
  3. CLARITHROMYCIN [Concomitant]
  4. ENOXAPARIN SODIUM [Concomitant]
  5. FENTANYL CITRATE [Concomitant]
  6. FLOXACILLIN SODIUM [Concomitant]
  7. FUROSEMIDE [Concomitant]
  8. GENTAMICIN [Concomitant]
  9. HEPARIN SODIUM [Concomitant]
  10. INSULIN (INSULIN) [Concomitant]
  11. MIDAZOLAM HYDROCHLORIDE (MIDAZOLAM HYDROCHLORIDE) [Concomitant]
  12. ACETAMINOPHEN [Concomitant]
  13. PROPOFOL [Concomitant]
  14. TAZOCIN (PIP/TAZO) [Concomitant]
  15. PARENTAL NUTRITION (SOLUTIOSN FOR PARENTERAL NUTRITION) [Concomitant]
  16. LACTATED RINGERS (SODIUM CHLORIDE COMPOUND INJECTION) [Concomitant]

REACTIONS (4)
  - EMPYEMA [None]
  - PNEUMONIA [None]
  - RENAL FAILURE ACUTE [None]
  - THROMBOCYTOPENIA [None]
